FAERS Safety Report 19750963 (Version 2)
Quarter: 2021Q4

REPORT INFORMATION
  Report Type: Spontaneous
  Country: NL (occurrence: NL)
  Receive Date: 20210826
  Receipt Date: 20211101
  Transmission Date: 20220303
  Serious: Yes (Other)
  Sender: FDA-Public Use
  Company Number: NL-JNJFOC-20210317461

PATIENT
  Age: 26 Year
  Sex: Female
  Weight: 67 kg

DRUGS (6)
  1. OLANZAPINE [Suspect]
     Active Substance: OLANZAPINE
     Indication: Product used for unknown indication
     Dosage: 10 MILLIGRAM, 1 DD
     Route: 065
     Dates: start: 20200603, end: 20201208
  2. OLANZAPINE [Suspect]
     Active Substance: OLANZAPINE
     Dosage: 7.5 MILLIGRAM, 1 DD
     Route: 065
     Dates: start: 20201208
  3. OLANZAPINE [Suspect]
     Active Substance: OLANZAPINE
     Dosage: 2.5 MILLIGRAM
     Dates: start: 202103
  4. PALIPERIDONE PALMITATE [Suspect]
     Active Substance: PALIPERIDONE PALMITATE
     Indication: Product used for unknown indication
     Dosage: 525 MILLIGRAM, Q3MONTHS
     Route: 030
     Dates: start: 20201118, end: 20210515
  5. PALIPERIDONE PALMITATE [Suspect]
     Active Substance: PALIPERIDONE PALMITATE
     Indication: Product used for unknown indication
     Dosage: 150 MILLIGRAM
     Dates: start: 20200511, end: 20201101
  6. AKINETON                           /00079501/ [Concomitant]
     Dosage: 1 MILLIGRAM 3DD

REACTIONS (4)
  - Dry eye [Unknown]
  - Blepharospasm [Recovering/Resolving]
  - Eye pain [Unknown]
  - Tardive dyskinesia [Unknown]

NARRATIVE: CASE EVENT DATE: 20200801
